FAERS Safety Report 12774939 (Version 1)
Quarter: 2016Q3

REPORT INFORMATION
  Report Type: Spontaneous
  Country: US (occurrence: US)
  Receive Date: 20160921
  Receipt Date: 20160921
  Transmission Date: 20161109
  Serious: Yes (Hospitalization)
  Sender: FDA-Public Use
  Company Number: None

PATIENT
  Age: 66 Year
  Sex: Male
  Weight: 107.1 kg

DRUGS (1)
  1. SIMVASTATIN. [Suspect]
     Active Substance: SIMVASTATIN
     Indication: HYPERLIPIDAEMIA
     Route: 048
     Dates: start: 20131014, end: 20160301

REACTIONS (4)
  - Rhabdomyolysis [None]
  - Pancytopenia [None]
  - Systemic inflammatory response syndrome [None]
  - Procedural pain [None]

NARRATIVE: CASE EVENT DATE: 20160622
